FAERS Safety Report 8189113-9 (Version None)
Quarter: 2012Q1

REPORT INFORMATION
  Report Type: 
  Country: None (occurrence: None)
  Receive Date: 20120307
  Receipt Date: 20120223
  Transmission Date: 20120608
  Serious: Yes (Other)
  Sender: FDA-Public Use
  Company Number: US-JNJCP-30000092431

PATIENT
  Age: 84 Year
  Sex: Female
  Weight: 77 kg

DRUGS (3)
  1. HYGROTON 50MG [Concomitant]
     Dosage: 50MG ONCE A DAY SINCE ONE MONTH
  2. ATACAND [Concomitant]
     Dosage: 32MG, ONCE A DAY SINCE FIVE YEARS
  3. NTG RAPID WRINKLE REPAIR MOIST SPF30 USA NTWRM3US [Suspect]
     Dosage: ONE PUMP, ONCE
     Route: 061
     Dates: start: 20120217, end: 20120217

REACTIONS (4)
  - APPLICATION SITE PAIN [None]
  - APPLICATION SITE VESICLES [None]
  - APPLICATION SITE PRURITUS [None]
  - APPLICATION SITE ERYTHEMA [None]
